FAERS Safety Report 14310920 (Version 7)
Quarter: 2018Q1

REPORT INFORMATION
  Report Type: Spontaneous
  Country: US (occurrence: US)
  Receive Date: 20171221
  Receipt Date: 20180227
  Transmission Date: 20180509
  Serious: Yes (Other)
  Sender: FDA-Public Use
  Company Number: US-AMGEN-USASP2017187767

PATIENT
  Age: 70 Year
  Sex: Female

DRUGS (27)
  1. METFORMIN [Concomitant]
     Active Substance: METFORMIN HYDROCHLORIDE
     Dosage: 500 MG, UNK
  2. PREDNISONE. [Concomitant]
     Active Substance: PREDNISONE
     Dosage: UNK
     Dates: start: 201710
  3. AMLODIPINE [Concomitant]
     Active Substance: AMLODIPINE BESYLATE
     Dosage: 10 MG, UNK
  4. PANTOPRAZOLE [Concomitant]
     Active Substance: PANTOPRAZOLE
     Dosage: 40 MG, UNK
  5. TIMOLOL MALEATE. [Concomitant]
     Active Substance: TIMOLOL MALEATE
     Dosage: UNK
  6. CAFFEINE. [Concomitant]
     Active Substance: CAFFEINE
     Dosage: UNK
  7. ENBREL [Suspect]
     Active Substance: ETANERCEPT
     Indication: FELTY^S SYNDROME
     Dosage: 50 MG, Q2WK
     Route: 058
     Dates: start: 20150402
  8. ENBREL [Suspect]
     Active Substance: ETANERCEPT
     Indication: RHEUMATOID ARTHRITIS
     Dosage: 50 MG, QWK
     Route: 058
     Dates: end: 20171031
  9. DEPO-MEDROL [Concomitant]
     Active Substance: METHYLPREDNISOLONE ACETATE
     Dosage: 1 ML, UNK
  10. KETOROLAC [Concomitant]
     Active Substance: KETOROLAC\KETOROLAC TROMETHAMINE
     Dosage: UNK
  11. PREDNISOLONE ACETATE. [Concomitant]
     Active Substance: PREDNISOLONE ACETATE
  12. RANITIDINE. [Concomitant]
     Active Substance: RANITIDINE
     Dosage: 300 MG, UNK
  13. DOXYCYCLINE HYCLATE. [Concomitant]
     Active Substance: DOXYCYCLINE HYCLATE
     Dosage: 100 MG, UNK
  14. XELJANZ [Concomitant]
     Active Substance: TOFACITINIB CITRATE
     Dosage: 5 MG, BID
     Route: 048
  15. KENALOG [Concomitant]
     Active Substance: TRIAMCINOLONE ACETONIDE
     Dosage: 1.5 ML, UNK
  16. PRAVASTATIN. [Concomitant]
     Active Substance: PRAVASTATIN
     Dosage: 20 MG, UNK
  17. VIGAMOX [Concomitant]
     Active Substance: MOXIFLOXACIN HYDROCHLORIDE
     Dosage: UNK
  18. ZETIA [Concomitant]
     Active Substance: EZETIMIBE
     Dosage: 10 MG, UNK
  19. BENAZEPRIL [Concomitant]
     Active Substance: BENAZEPRIL HYDROCHLORIDE
     Dosage: 20 MG, UNK
  20. FLUOROMETHOLONE. [Concomitant]
     Active Substance: FLUOROMETHOLONE
     Dosage: UNK
  21. METHOTREXATE. [Suspect]
     Active Substance: METHOTREXATE
     Indication: FELTY^S SYNDROME
     Dosage: UNK
     Route: 065
     Dates: start: 201504, end: 201601
  22. PREDNISONE. [Concomitant]
     Active Substance: PREDNISONE
     Dosage: 5 MG, QD MORNING FOR 30 DAYS
  23. TRAVATAN Z [Concomitant]
     Active Substance: TRAVOPROST
  24. TRIAMCINOLONE ACETONIDE. [Concomitant]
     Active Substance: TRIAMCINOLONE ACETONIDE
     Dosage: UNK
     Route: 061
  25. MISOPROSTOL. [Concomitant]
     Active Substance: MISOPROSTOL
     Dosage: 200 MUG, UNK
  26. WELCHOL [Concomitant]
     Active Substance: COLESEVELAM HYDROCHLORIDE
     Dosage: 625 MG, UNK
  27. ATENOLOL. [Concomitant]
     Active Substance: ATENOLOL
     Dosage: 50 MG, UNK

REACTIONS (20)
  - Blood osmolarity decreased [Unknown]
  - Ocular hyperaemia [Unknown]
  - Haematocrit increased [Unknown]
  - Rheumatoid arthritis [Unknown]
  - Aspartate aminotransferase increased [Unknown]
  - Off label use [Unknown]
  - Anxiety [Unknown]
  - Red blood cell count increased [Unknown]
  - Facial paralysis [Unknown]
  - Blood bilirubin increased [Unknown]
  - Haemoglobin increased [Unknown]
  - Cranial nerve disorder [Unknown]
  - Glaucoma [Unknown]
  - Interstitial lung disease [Unknown]
  - Sleep disorder [Unknown]
  - Visual impairment [Unknown]
  - Protein total increased [Unknown]
  - Albumin globulin ratio decreased [Unknown]
  - Treatment failure [Unknown]
  - Anion gap increased [Unknown]

NARRATIVE: CASE EVENT DATE: 201504
